FAERS Safety Report 9885682 (Version 3)
Quarter: 2014Q2

REPORT INFORMATION
  Report Type: Report from Study
  Country: GB (occurrence: GB)
  Receive Date: 20140210
  Receipt Date: 20140407
  Transmission Date: 20141212
  Serious: Yes (Other)
  Sender: FDA-Public Use
  Company Number: GB-INCYTE CORPORATION-2014IN000314

PATIENT
  Age: 54 Year
  Sex: Male

DRUGS (8)
  1. JAKAVI [Suspect]
     Indication: MYELOFIBROSIS
     Dosage: UNK
  2. JAKAVI [Suspect]
     Dosage: ALTER THE DOSE, UNKNOWN
  3. JAKAVI [Suspect]
     Dosage: 20 MG, BID
  4. JAKAVI [Suspect]
     Dosage: 15 OR 20, VARIES ACCORDING TO BLOOD TEST RESULTS;
     Dates: start: 201211
  5. JAKAVI [Suspect]
     Dosage: 10 MG, BID
  6. IMATINIB [Suspect]
     Indication: CHRONIC MYELOID LEUKAEMIA
     Dosage: UNK
  7. ASPIRIN [Concomitant]
     Dosage: UNK
  8. ALLOPURINOL [Concomitant]
     Dosage: UNK

REACTIONS (6)
  - Bone marrow disorder [Recovering/Resolving]
  - Bone marrow failure [Recovering/Resolving]
  - Platelet count decreased [Recovering/Resolving]
  - Haemoglobin decreased [Recovering/Resolving]
  - Fatigue [Recovering/Resolving]
  - Drug ineffective [Recovered/Resolved]
